FAERS Safety Report 12455042 (Version 3)
Quarter: 2016Q3

REPORT INFORMATION
  Report Type: Spontaneous
  Country: US (occurrence: US)
  Receive Date: 20160610
  Receipt Date: 20160810
  Transmission Date: 20161109
  Serious: No
  Sender: FDA-Public Use
  Company Number: US-PFIZER INC-2016292216

PATIENT
  Sex: Female

DRUGS (1)
  1. DETROL [Suspect]
     Active Substance: TOLTERODINE TARTRATE
     Indication: URINARY INCONTINENCE
     Dosage: HIGHEST DOSE, ONCE A DAY

REACTIONS (1)
  - Drug ineffective [Unknown]
